FAERS Safety Report 10527671 (Version 1)
Quarter: 2014Q4

REPORT INFORMATION
  Report Type: Spontaneous
  Country: DE (occurrence: None)
  Receive Date: 20141016
  Receipt Date: 20141016
  Transmission Date: 20150528
  Serious: Yes (Life-Threatening)
  Sender: FDA-Public Use
  Company Number: 20141862

PATIENT
  Age: 78 Year
  Sex: Female

DRUGS (1)
  1. METEX (METHOTREXATE) [Suspect]
     Active Substance: METHOTREXATE
     Indication: RHEUMATOID ARTHRITIS
     Dosage: 1X5 MILLIGRAM IN 1 DAY
     Route: 048
     Dates: start: 20140903, end: 20140911

REACTIONS (7)
  - Hepatic enzyme increased [None]
  - Inappropriate schedule of drug administration [None]
  - Pancreatitis [None]
  - Enterocolitis [None]
  - Overdose [None]
  - Stomatitis [None]
  - Pancytopenia [None]

NARRATIVE: CASE EVENT DATE: 20140911
